FAERS Safety Report 7290987-4 (Version None)
Quarter: 2011Q1

REPORT INFORMATION
  Report Type: 
  Country: None (occurrence: None)
  Receive Date: 20110201
  Receipt Date: 20110125
  Transmission Date: 20110831
  Serious: Yes (Disabling)
  Sender: FDA-Public Use
  Company Number: 2011SP003588

PATIENT
  Age: 67 Year
  Sex: Male
  Weight: 139 kg

DRUGS (8)
  1. MIRTAZAPINE [Suspect]
     Indication: PRODUCT USED FOR UNKNOWN INDICATION
     Dates: start: 20101025
  2. MIRTAZAPINE [Suspect]
     Indication: PRODUCT USED FOR UNKNOWN INDICATION
     Dates: start: 20110114
  3. VENTOLIN [Concomitant]
  4. CITALOPRAM [Concomitant]
  5. NITRAZEPAM [Concomitant]
  6. PREDNISOLONE [Concomitant]
  7. TIOTROPIUM BROMIDE [Concomitant]
  8. DOXYCYCLINE [Concomitant]

REACTIONS (1)
  - ANGER [None]
